FAERS Safety Report 20319509 (Version 1)
Quarter: 2022Q1

REPORT INFORMATION
  Report Type: Spontaneous
  Country: US (occurrence: US)
  Receive Date: 20220110
  Receipt Date: 20220110
  Transmission Date: 20220423
  Serious: No
  Sender: FDA-Public Use
  Company Number: US-SA-SAC20220106000311

PATIENT
  Age: 33 Year
  Sex: Female

DRUGS (29)
  1. DUPIXENT [Suspect]
     Active Substance: DUPILUMAB
     Indication: Asthma
     Dosage: 300 MG, QOW
     Route: 058
     Dates: start: 20210825
  2. SUDAFED [Concomitant]
     Active Substance: PSEUDOEPHEDRINE HYDROCHLORIDE
  3. TRAMADOL [Concomitant]
     Active Substance: TRAMADOL
     Dosage: 30MG
  4. CYCLOBENZAPRINE [Concomitant]
     Active Substance: CYCLOBENZAPRINE
  5. SINGULAIR [Concomitant]
     Active Substance: MONTELUKAST SODIUM
  6. ALBUTEROL SULFATE [Concomitant]
     Active Substance: ALBUTEROL SULFATE
     Dosage: 100MG
  7. VITAMIN D NOS [Concomitant]
     Active Substance: VITAMIN D NOS
     Dosage: 100MG
  8. VITAMIN D NOS [Concomitant]
     Active Substance: VITAMIN D NOS
     Dosage: 66MG
  9. CORLANOR [Concomitant]
     Active Substance: IVABRADINE HYDROCHLORIDE
     Dosage: 66MG
  10. ZINC [Concomitant]
     Active Substance: ZINC
     Dosage: 66MG
  11. BIOTIN [Concomitant]
     Active Substance: BIOTIN
  12. PREDNISONE [Concomitant]
     Active Substance: PREDNISONE
  13. NORTRIPTYLINE [Concomitant]
     Active Substance: NORTRIPTYLINE
     Dosage: 10MG
  14. AZITHROMYCIN [Concomitant]
     Active Substance: AZITHROMYCIN
     Dosage: 5MG
  15. XYZAL [Concomitant]
     Active Substance: LEVOCETIRIZINE DIHYDROCHLORIDE
     Indication: Seasonal allergy
     Dosage: 015MG
  16. EPINEPHRINE [Concomitant]
     Active Substance: EPINEPHRINE
     Dosage: 10MG
  17. LEXAPRO [Concomitant]
     Active Substance: ESCITALOPRAM OXALATE
     Dosage: 015MG
  18. AJOVY [Concomitant]
     Active Substance: FREMANEZUMAB-VFRM
     Dosage: 20MG
  19. BUTALBITAL [Concomitant]
     Active Substance: BUTALBITAL
     Dosage: 20MG
  20. ACETAMINOPHEN [Concomitant]
     Active Substance: ACETAMINOPHEN
     Dosage: 20MG
  21. PRILOSEC [Concomitant]
     Active Substance: OMEPRAZOLE MAGNESIUM
     Dosage: 20MG
  22. PEPCID [Concomitant]
     Active Substance: FAMOTIDINE
     Dosage: 20MG
  23. METFORMIN [Concomitant]
     Active Substance: METFORMIN HYDROCHLORIDE
     Dosage: 20MG
  24. XOLAIR [Concomitant]
     Active Substance: OMALIZUMAB
  25. DEPAKOTE [Concomitant]
     Active Substance: DIVALPROEX SODIUM
     Dosage: 125MG
  26. PENICILLIN G POTASSIUM [Concomitant]
     Active Substance: PENICILLIN G POTASSIUM
     Dosage: 100MG
  27. TOPAMAX [Concomitant]
     Active Substance: TOPIRAMATE
     Dosage: 100MG
  28. DEMEROL [Concomitant]
     Active Substance: MEPERIDINE HYDROCHLORIDE
     Dosage: 100MG
  29. FENTANYL [Concomitant]
     Active Substance: FENTANYL
     Dosage: 100MG

REACTIONS (2)
  - Nasal congestion [Unknown]
  - Drug ineffective [Unknown]
